FAERS Safety Report 7803517-2 (Version None)
Quarter: 2011Q4

REPORT INFORMATION
  Report Type: 
  Country: None (occurrence: None)
  Receive Date: 20111008
  Receipt Date: 20110928
  Transmission Date: 20120403
  Serious: Yes (Hospitalization)
  Sender: FDA-Public Use
  Company Number: DK-ASTRAZENECA-2011SE58302

PATIENT
  Age: 53 Year
  Sex: Male

DRUGS (5)
  1. BRILIQUE [Suspect]
     Indication: THROMBOSIS PROPHYLAXIS
     Route: 048
     Dates: start: 20110907, end: 20110915
  2. ASPIRIN [Concomitant]
     Indication: THROMBOSIS PROPHYLAXIS
     Route: 048
  3. METOPROLOL TARTRATE [Suspect]
     Indication: ANGINA PECTORIS
     Dates: start: 20110913, end: 20110915
  4. NICOTINE [Concomitant]
     Indication: EX-TOBACCO USER
  5. SIMVASTATIN [Concomitant]
     Indication: HYPERCHOLESTEROLAEMIA

REACTIONS (1)
  - GENERALISED ERYTHEMA [None]
